FAERS Safety Report 4546529-7 (Version None)
Quarter: 2005Q1

REPORT INFORMATION
  Report Type: 
  Country: None (occurrence: None)
  Receive Date: 20050106
  Receipt Date: 20041230
  Transmission Date: 20050727
  Serious: Yes (Life-Threatening, Hospitalization, Other)
  Sender: FDA-Public Use
  Company Number: LB-GLAXOSMITHKLINE-B0363300A

PATIENT
  Age: 42 Year
  Sex: Male

DRUGS (2)
  1. AUGMENTIN '125' [Suspect]
     Dosage: 1G UNKNOWN
     Route: 048
     Dates: start: 20041208, end: 20041220
  2. ENEMA [Concomitant]

REACTIONS (1)
  - INTESTINAL OBSTRUCTION [None]
